FAERS Safety Report 4520116-9 (Version None)
Quarter: 2004Q4

REPORT INFORMATION
  Report Type: 
  Country: None (occurrence: None)
  Receive Date: 20041202
  Receipt Date: 20041202
  Transmission Date: 20050328
  Serious: Yes (Hospitalization)
  Sender: FDA-Public Use
  Company Number: None

PATIENT
  Age: 74 Year
  Sex: Male
  Weight: 58.9676 kg

DRUGS (5)
  1. CISPLATIN [Suspect]
     Indication: LUNG NEOPLASM MALIGNANT
     Dates: start: 20040809
  2. VEPESID [Suspect]
     Indication: LUNG NEOPLASM MALIGNANT
     Dates: start: 20040809
  3. MORPHINE SULFATE [Concomitant]
  4. DOLASETRON [Concomitant]
  5. DEXAMETHASONE [Concomitant]

REACTIONS (5)
  - INFUSION RELATED REACTION [None]
  - LOSS OF CONSCIOUSNESS [None]
  - OXYGEN SATURATION DECREASED [None]
  - SKIN DISCOLOURATION [None]
  - URINARY INCONTINENCE [None]
